FAERS Safety Report 5956146-X (Version None)
Quarter: 2008Q4

REPORT INFORMATION
  Report Type: 
  Country: None (occurrence: None)
  Receive Date: 20081112
  Receipt Date: 20081105
  Transmission Date: 20090506
  Serious: Yes (Other)
  Sender: FDA-Public Use
  Company Number: 2008S1000489

PATIENT
  Age: 80 Year
  Sex: Female

DRUGS (2)
  1. OLUX [Suspect]
     Indication: DRUG USE FOR UNKNOWN INDICATION
     Dosage: 0.05 PCT;QD;TOP
     Route: 061
     Dates: start: 20080901
  2. TARSUM SHAMPOO [Suspect]
     Indication: PSORIASIS
     Dosage: TOP
     Route: 061
     Dates: start: 20080901

REACTIONS (7)
  - DYSKINESIA [None]
  - HEAD DISCOMFORT [None]
  - JAW DISORDER [None]
  - MALOCCLUSION [None]
  - MASTICATION DISORDER [None]
  - TOOTH DISORDER [None]
  - TRISMUS [None]
